FAERS Safety Report 6763744-2 (Version None)
Quarter: 2010Q2

REPORT INFORMATION
  Report Type: 
  Country: None (occurrence: None)
  Receive Date: 20100610
  Receipt Date: 20100608
  Transmission Date: 20101027
  Serious: Yes (Hospitalization)
  Sender: FDA-Public Use
  Company Number: DE-ROCHE-622146

PATIENT
  Age: 84 Year
  Sex: Male
  Weight: 82 kg

DRUGS (7)
  1. TORSEMIDE [Suspect]
     Route: 048
     Dates: start: 19880101, end: 20090115
  2. THEOPHYLLINE [Interacting]
     Route: 048
     Dates: start: 19880101
  3. TAMSULOSIN HCL [Concomitant]
     Route: 048
  4. ISMN [Concomitant]
     Route: 048
  5. ALLOPURINOL [Concomitant]
     Indication: HYPERURICAEMIA
     Route: 048
  6. PANTOZOL [Concomitant]
     Indication: REFLUX OESOPHAGITIS
     Route: 048
     Dates: start: 20081021
  7. MUCOFALK [Concomitant]
     Route: 048
     Dates: start: 20081022

REACTIONS (2)
  - DRUG INTERACTION [None]
  - VENOUS THROMBOSIS [None]
